FAERS Safety Report 18467630 (Version 2)
Quarter: 2020Q4

REPORT INFORMATION
  Report Type: Report from Study
  Country: US (occurrence: US)
  Receive Date: 20201105
  Receipt Date: 20201201
  Transmission Date: 20210114
  Serious: Yes (Hospitalization)
  Sender: FDA-Public Use
  Company Number: US-ADAMAS PHARMA, LLC-2020ADA02504

PATIENT
  Age: 61 Year
  Sex: Male
  Weight: 143 kg

DRUGS (24)
  1. CYANOCOBALAMIN. [Concomitant]
     Active Substance: CYANOCOBALAMIN
     Indication: NUTRITIONAL SUPPLEMENTATION
     Dosage: 1000 ?G, 1X/DAY
     Route: 048
     Dates: start: 2017
  2. DOCUSATE SODIUM. [Concomitant]
     Active Substance: DOCUSATE SODIUM
     Indication: PRODUCT USED FOR UNKNOWN INDICATION
     Dosage: 100 ?G, 3X/DAY
     Route: 048
     Dates: start: 2017, end: 202010
  3. FENOFIBRATE. [Concomitant]
     Active Substance: FENOFIBRATE
     Indication: BLOOD CHOLESTEROL INCREASED
     Dosage: 160 MG, 1X/DAY
     Route: 048
     Dates: start: 2009
  4. MELOXICAM. [Concomitant]
     Active Substance: MELOXICAM
     Indication: PAIN
     Dosage: 15 MG, 1X/DAY
     Route: 048
     Dates: start: 20200908
  5. SENOKOT [Concomitant]
     Active Substance: SENNOSIDES
     Indication: CONSTIPATION
     Dosage: 100 MG, 3X/DAY
     Route: 048
     Dates: start: 2017
  6. ADS-5102 [Suspect]
     Active Substance: AMANTADINE
     Indication: GAIT DISTURBANCE
     Dosage: UNK UNK, 1X/DAY
     Route: 048
     Dates: start: 20191008, end: 20201007
  7. MIRABEGRON [Concomitant]
     Active Substance: MIRABEGRON
     Indication: HYPERTONIC BLADDER
     Dosage: 50 MG, 1X/DAY
     Route: 048
     Dates: start: 202001
  8. CHOLECALCIFEROL [Concomitant]
     Active Substance: CHOLECALCIFEROL
     Indication: NUTRITIONAL SUPPLEMENTATION
     Dosage: 5000 IU, 1X/DAY
     Route: 048
     Dates: start: 2017
  9. ASPIRIN. [Concomitant]
     Active Substance: ASPIRIN
     Indication: THROMBOSIS PROPHYLAXIS
     Dosage: 81 MG, 1X/DAY
     Route: 048
     Dates: start: 2009
  10. SOLIFENACIN SUCCINATE. [Concomitant]
     Active Substance: SOLIFENACIN SUCCINATE
     Indication: INCONTINENCE
     Dosage: 10 MG, ONCE
     Route: 048
     Dates: start: 2020
  11. DULOXETINE. [Concomitant]
     Active Substance: DULOXETINE
     Indication: PAIN
     Dosage: 30 MG, 1X/DAY
     Route: 048
     Dates: start: 2018, end: 20201001
  12. DULOXETINE. [Concomitant]
     Active Substance: DULOXETINE
     Indication: DEPRESSION
  13. INTERFERON BETA 1A [Concomitant]
     Active Substance: INTERFERON BETA-1A
     Indication: MULTIPLE SCLEROSIS
     Dosage: 30 ?G, 1X/WEEK
     Route: 058
     Dates: start: 20180413, end: 202010
  14. TIZANIDINE HCL [Concomitant]
     Active Substance: TIZANIDINE HYDROCHLORIDE
     Indication: PAIN
     Dosage: 2 MG, 2X/DAY
     Route: 048
     Dates: start: 2017
  15. MEN^S HEALTH MULTIVITAMIN [Concomitant]
     Indication: VITAMIN SUPPLEMENTATION
     Dosage: 1 DOSAGE FORMS, 1X/DAY
     Route: 048
     Dates: start: 2014
  16. OMEPRAZOLE. [Concomitant]
     Active Substance: OMEPRAZOLE
     Indication: GASTROOESOPHAGEAL REFLUX DISEASE
     Dosage: 40 MG, 1X/DAY
     Route: 048
     Dates: start: 20200520
  17. POLYETHYLENE GLYCOL [Concomitant]
     Active Substance: POLYETHYLENE GLYCOLS
     Indication: CONSTIPATION
     Dosage: 17 G, AS NEEDED
     Route: 048
     Dates: start: 2020
  18. RANITIDINE HCL [Concomitant]
     Active Substance: RANITIDINE HYDROCHLORIDE
     Indication: GASTROOESOPHAGEAL REFLUX DISEASE
     Dosage: 150 MG, 2X/DAY
     Route: 048
     Dates: start: 1999
  19. UROXATRAL [Concomitant]
     Active Substance: ALFUZOSIN HYDROCHLORIDE
     Indication: URINARY INCONTINENCE
     Dosage: 10 MG, 1X/DAY
     Route: 048
     Dates: start: 20200305
  20. VITAMIN C [Concomitant]
     Active Substance: ASCORBIC ACID
     Indication: VITAMIN SUPPLEMENTATION
     Dosage: 1000 MG, 1X/DAY
     Route: 048
     Dates: start: 2009
  21. BIOTENE NOS [Concomitant]
     Active Substance: CETYLPYRIDINIUM CHLORIDE OR SODIUM FLUORIDE OR SODIUM MONOFLUOROPHOSPHATE OR GLUCOSE OXIDASE\LACTOFERRIN\LACTOPEROXIDASE BOVINE\LYSOZYME
     Indication: DENTAL CARE
     Dosage: 5000 ?G, 1X/DAY
     Route: 048
     Dates: start: 2017
  22. ALFUZOSIN HCL [Concomitant]
     Active Substance: ALFUZOSIN HYDROCHLORIDE
     Indication: URINARY INCONTINENCE
     Dosage: 10 MG, 1X/DAY
     Route: 048
     Dates: start: 20200305
  23. FUROSEMIDE. [Concomitant]
     Active Substance: FUROSEMIDE
     Indication: HYPERTENSION
     Dosage: 20 MG, 1X/WEEK
     Route: 048
     Dates: start: 20200908
  24. MAGNESIUM OXIDE. [Concomitant]
     Active Substance: MAGNESIUM OXIDE
     Indication: GASTROOESOPHAGEAL REFLUX DISEASE
     Dosage: 250 MG (1 TO 2 TABLETS), 1X/DAY
     Route: 048
     Dates: start: 2009

REACTIONS (2)
  - Syncope [Recovered/Resolved]
  - Diarrhoea [Recovered/Resolved]

NARRATIVE: CASE EVENT DATE: 20201019
